FAERS Safety Report 21092732 (Version 4)
Quarter: 2022Q3

REPORT INFORMATION
  Report Type: Spontaneous
  Country: US (occurrence: US)
  Receive Date: 20220718
  Receipt Date: 20220928
  Transmission Date: 20221027
  Serious: Yes (Life-Threatening, Other)
  Sender: FDA-Public Use
  Company Number: US-009507513-2207USA004502

PATIENT
  Sex: Male

DRUGS (1)
  1. JANUVIA [Suspect]
     Active Substance: SITAGLIPTIN PHOSPHATE
     Dosage: 100 MG./UNKNOWN BY REPORTER
     Route: 048

REACTIONS (6)
  - Ill-defined disorder [Unknown]
  - Gastrointestinal obstruction [Not Recovered/Not Resolved]
  - Abdominal distension [Not Recovered/Not Resolved]
  - Tongue coated [Not Recovered/Not Resolved]
  - Flatulence [Not Recovered/Not Resolved]
  - Ill-defined disorder [Not Recovered/Not Resolved]
